FAERS Safety Report 8190178-9 (Version None)
Quarter: 2012Q1

REPORT INFORMATION
  Report Type: 
  Country: None (occurrence: None)
  Receive Date: 20120305
  Receipt Date: 20120220
  Transmission Date: 20120608
  Serious: Yes (Other)
  Sender: FDA-Public Use
  Company Number: JPI-P-019947

PATIENT
  Age: 58 Year
  Sex: Female

DRUGS (1)
  1. XYREM [Suspect]
     Indication: NARCOLEPSY
     Dosage: ,ORAL, 9 GM  (4.5 GM,2 IN 1 D),ORAL
     Route: 048
     Dates: start: 20071113

REACTIONS (2)
  - SINUSITIS [None]
  - CORONARY ARTERY DISEASE [None]
